FAERS Safety Report 4818294-7 (Version None)
Quarter: 2005Q4

REPORT INFORMATION
  Report Type: 
  Country: None (occurrence: None)
  Receive Date: 20051102
  Receipt Date: 20051026
  Transmission Date: 20060501
  Serious: Yes (Hospitalization)
  Sender: FDA-Public Use
  Company Number: US-BRISTOL-MYERS SQUIBB COMPANY-13159017

PATIENT
  Age: 66 Year
  Sex: Female

DRUGS (5)
  1. CARBOPLATIN [Suspect]
     Indication: LUNG CANCER METASTATIC
     Dosage: AUC 3. PT HAD REC'D 5 COURSES PRIOR TO EVENT.
     Route: 042
     Dates: start: 20050721
  2. GEMCITABINE [Suspect]
     Indication: LUNG CANCER METASTATIC
     Dosage: PT HAD REC'D 5 COURSES PRIOR TO EVENT
     Route: 042
     Dates: start: 20050721
  3. LEVOXYL [Concomitant]
     Dates: start: 19850101
  4. PREMARIN [Concomitant]
     Dates: start: 19850101
  5. VERAPAMIL [Concomitant]
     Dates: start: 20000101

REACTIONS (1)
  - BACTERAEMIA [None]
